FAERS Safety Report 6661319-7 (Version None)
Quarter: 2010Q1

REPORT INFORMATION
  Report Type: 
  Country: None (occurrence: None)
  Receive Date: 20100331
  Receipt Date: 20100318
  Transmission Date: 20100710
  Serious: Yes (Hospitalization, Other)
  Sender: FDA-Public Use
  Company Number: PHEH2010US02417

PATIENT
  Sex: Female
  Weight: 45 kg

DRUGS (6)
  1. EXJADE [Suspect]
     Indication: THALASSAEMIA SICKLE CELL
     Dosage: 20 MG/KG QD
     Route: 048
     Dates: start: 20090825, end: 20091001
  2. EXJADE [Suspect]
     Indication: IRON OVERLOAD
     Dosage: 30 MG/KG QD
     Route: 048
     Dates: start: 20091001, end: 20100202
  3. PROTONIX [Concomitant]
     Indication: DYSPEPSIA
     Dosage: 40 MG, BID
     Route: 048
     Dates: start: 20090801
  4. PRAZOSIN [Concomitant]
     Indication: NIGHTMARE
     Dosage: 2 MG, QHS
     Route: 048
     Dates: start: 20090801
  5. SEROQUEL [Concomitant]
     Indication: DEPRESSION
     Dosage: 100 MG, QHS
     Route: 048
     Dates: start: 20090801
  6. EFFEXOR XR [Concomitant]
     Indication: DEPRESSION
     Dosage: 75 MG, QD
     Route: 048
     Dates: start: 20090801

REACTIONS (25)
  - ABDOMINAL PAIN UPPER [None]
  - ALANINE AMINOTRANSFERASE INCREASED [None]
  - ANXIETY [None]
  - ASCITES [None]
  - ASPARTATE AMINOTRANSFERASE INCREASED [None]
  - BLOOD ALKALINE PHOSPHATASE INCREASED [None]
  - BLOOD AMYLASE INCREASED [None]
  - BLOOD BILIRUBIN INCREASED [None]
  - CHILLS [None]
  - CONFUSIONAL STATE [None]
  - DEHYDRATION [None]
  - DIARRHOEA [None]
  - DIZZINESS [None]
  - FATIGUE [None]
  - HEAD DISCOMFORT [None]
  - HEPATIC CIRRHOSIS [None]
  - HEPATIC FIBROSIS [None]
  - HEPATOMEGALY [None]
  - HYPERHIDROSIS [None]
  - INSOMNIA [None]
  - RASH [None]
  - SKELETAL INJURY [None]
  - TINNITUS [None]
  - WEIGHT DECREASED [None]
  - WHITE BLOOD CELL COUNT INCREASED [None]
